FAERS Safety Report 15682070 (Version 1)
Quarter: 2018Q4

REPORT INFORMATION
  Report Type: Spontaneous
  Country: US (occurrence: US)
  Receive Date: 20181203
  Receipt Date: 20181203
  Transmission Date: 20190205
  Serious: Yes (Other)
  Sender: FDA-Public Use
  Company Number: None

PATIENT
  Age: 56 Year
  Sex: Female

DRUGS (1)
  1. PERFLUTREN LIPID MICROSPHERE [Suspect]
     Active Substance: PERFLUTREN
     Indication: DIAGNOSTIC PROCEDURE
     Route: 042
     Dates: start: 20180725, end: 20180725

REACTIONS (3)
  - Headache [None]
  - Back pain [None]
  - Infusion related reaction [None]

NARRATIVE: CASE EVENT DATE: 20180725
